FAERS Safety Report 17980447 (Version 4)
Quarter: 2021Q4

REPORT INFORMATION
  Report Type: Spontaneous
  Country: US (occurrence: US)
  Receive Date: 20200703
  Receipt Date: 20211227
  Transmission Date: 20220303
  Serious: Yes (Other)
  Sender: FDA-Public Use
  Company Number: US-NAPPMUNDI-USA-2020-0150861

PATIENT
  Sex: Male

DRUGS (3)
  1. OXYCONTIN [Suspect]
     Active Substance: OXYCODONE HYDROCHLORIDE
     Indication: Back disorder
     Dosage: UNKNOWN
     Route: 048
  2. ACETAMINOPHEN\OXYCODONE HYDROCHLORIDE [Suspect]
     Active Substance: ACETAMINOPHEN\OXYCODONE HYDROCHLORIDE
     Indication: Product used for unknown indication
     Dosage: UNKNOWN
     Route: 048
  3. PERCOCET [Suspect]
     Active Substance: ACETAMINOPHEN\OXYCODONE HYDROCHLORIDE
     Indication: Product used for unknown indication
     Dosage: UNKNOWN
     Route: 065

REACTIONS (9)
  - Drug dependence [Unknown]
  - Inappropriate affect [Unknown]
  - Decreased appetite [Unknown]
  - Depressed mood [Unknown]
  - Irritability [Unknown]
  - Hypertension [Unknown]
  - Anxiety [Unknown]
  - Drug withdrawal syndrome [Unknown]
  - Unevaluable event [Unknown]
